FAERS Safety Report 10237258 (Version 2)
Quarter: 2014Q2

REPORT INFORMATION
  Report Type: Spontaneous
  Country: CA (occurrence: CA)
  Receive Date: 20140613
  Receipt Date: 20140618
  Transmission Date: 20141212
  Serious: Yes (Other)
  Sender: FDA-Public Use
  Company Number: CA-009507513-1406CAN004133

PATIENT
  Age: 55 Year
  Sex: Female

DRUGS (4)
  1. VICTRELIS [Suspect]
     Indication: CHRONIC HEPATITIS C
     Dosage: 800 MG, TID
     Route: 048
     Dates: start: 20140503, end: 20140604
  2. PEGASYS [Suspect]
     Indication: CHRONIC HEPATITIS C
     Dosage: 180 MICROGRAM, QW, 0.5 ML PRE-FILLED SYRINGE
     Route: 058
     Dates: start: 20140408, end: 20140604
  3. COPEGUS [Suspect]
     Indication: CHRONIC HEPATITIS C
     Dosage: 49 TABLET/WEEK=1400MG/DAY
     Route: 048
     Dates: start: 20140408, end: 20140604
  4. INSULIN [Concomitant]
     Indication: DIABETES MELLITUS
     Dosage: UNK

REACTIONS (2)
  - Suicide attempt [Recovered/Resolved]
  - Pain [Unknown]
